FAERS Safety Report 7880678-0 (Version None)
Quarter: 2011Q4

REPORT INFORMATION
  Report Type: 
  Country: None (occurrence: None)
  Receive Date: 20111101
  Receipt Date: 20111027
  Transmission Date: 20120403
  Serious: Yes (Disabling, Other)
  Sender: FDA-Public Use
  Company Number: BR-B.I. PHARMACEUTICALS,INC./RIDGEFIELD-2011-BR-01186BR

PATIENT
  Sex: Female

DRUGS (5)
  1. CLONAZEPAM [Concomitant]
     Indication: CEREBRAL ISCHAEMIA
  2. PERSANTIN [Suspect]
     Indication: CEREBRAL ISCHAEMIA
     Dosage: 150 MG
     Route: 048
     Dates: start: 19950101
  3. TRIVASTAL RETARD [Concomitant]
     Indication: CEREBRAL ISCHAEMIA
  4. PROPRANOLOL [Concomitant]
     Indication: ARRHYTHMIA
  5. ISQUEMILDE [Concomitant]
     Indication: CEREBRAL ISCHAEMIA

REACTIONS (6)
  - PALLOR [None]
  - NASOPHARYNGITIS [None]
  - ISCHAEMIA [None]
  - VISUAL ACUITY REDUCED [None]
  - BALANCE DISORDER [None]
  - CARDIOVASCULAR DISORDER [None]
